FAERS Safety Report 7223382-4 (Version None)
Quarter: 2011Q1

REPORT INFORMATION
  Report Type: 
  Country: None (occurrence: None)
  Receive Date: 20110112
  Receipt Date: 20100601
  Transmission Date: 20110831
  Serious: No
  Sender: FDA-Public Use
  Company Number: US-ALLERGAN-1007070US

PATIENT
  Sex: Female

DRUGS (4)
  1. REFRESH TEARS [Concomitant]
     Indication: DRY EYE
  2. AMBIEN [Concomitant]
  3. RESTASIS [Suspect]
     Indication: DRY EYE
     Dosage: UNK
     Route: 047
  4. ESTROGEN [Concomitant]

REACTIONS (3)
  - EYELID OEDEMA [None]
  - EYE PAIN [None]
  - OCULAR HYPERAEMIA [None]
